FAERS Safety Report 8369156-2 (Version None)
Quarter: 2012Q1

REPORT INFORMATION
  Report Type: 
  Country: None (occurrence: None)
  Receive Date: 20120323
  Receipt Date: 20111118
  Transmission Date: 20120608
  Serious: Yes (Hospitalization)
  Sender: FDA-Public Use
  Company Number: 163-21880-11112960

PATIENT
  Age: 75 Year
  Sex: Male

DRUGS (10)
  1. CYTOXAN [Concomitant]
  2. NEURONTIN [Concomitant]
  3. DILAUDID [Concomitant]
  4. FENTANYL-100 [Concomitant]
  5. PREDNISONE [Concomitant]
  6. REVLIMID [Suspect]
     Indication: MULTIPLE MYELOMA
     Dosage: SEE IMAGE
     Route: 048
     Dates: start: 20110701, end: 20111121
  7. REVLIMID [Suspect]
     Indication: MULTIPLE MYELOMA
     Dosage: SEE IMAGE
     Route: 048
     Dates: start: 20100201
  8. REVLIMID [Suspect]
     Indication: MULTIPLE MYELOMA
     Dosage: SEE IMAGE
     Route: 048
     Dates: start: 20100501
  9. REVLIMID [Suspect]
     Indication: MULTIPLE MYELOMA
     Dosage: SEE IMAGE
     Route: 048
     Dates: start: 20110501
  10. CITALOPRAM [Concomitant]

REACTIONS (6)
  - NEOPLASM PROGRESSION [None]
  - MULTIPLE MYELOMA [None]
  - DRUG INEFFECTIVE [None]
  - DEHYDRATION [None]
  - RENAL FAILURE [None]
  - ASTHENIA [None]
